FAERS Safety Report 20308664 (Version 9)
Quarter: 2024Q2

REPORT INFORMATION
  Report Type: Report from Study
  Country: DE (occurrence: DE)
  Receive Date: 20220107
  Receipt Date: 20240606
  Transmission Date: 20240715
  Serious: Yes (Hospitalization)
  Sender: FDA-Public Use
  Company Number: DE-TAKEDA-2022TUS000246

PATIENT
  Age: 65 Year
  Sex: Female
  Weight: 56 kg

DRUGS (22)
  1. LANADELUMAB [Suspect]
     Active Substance: LANADELUMAB
     Indication: Hereditary angioedema
     Dosage: 300 MILLIGRAM, Q2WEEKS
     Route: 065
     Dates: start: 20200402, end: 20200526
  2. LANADELUMAB [Suspect]
     Active Substance: LANADELUMAB
     Dosage: 300 MILLIGRAM
     Route: 065
     Dates: start: 20200527, end: 20200807
  3. LANADELUMAB [Suspect]
     Active Substance: LANADELUMAB
     Dosage: 300 MILLIGRAM, Q2WEEKS
     Route: 065
     Dates: start: 20200808
  4. Comirnaty [Concomitant]
     Indication: Prophylaxis
     Dosage: 0.3 MILLILITER
     Route: 030
     Dates: start: 20211202, end: 20211202
  5. Comirnaty [Concomitant]
     Dosage: 0.3 MILLILITER
     Route: 030
     Dates: start: 20210519, end: 20210519
  6. Comirnaty [Concomitant]
     Dosage: 0.3 MILLILITER
     Route: 030
     Dates: start: 20220405, end: 20220405
  7. Comirnaty [Concomitant]
     Dosage: 0.3 MILLILITER
     Route: 030
     Dates: start: 20210104, end: 20210104
  8. METFORMIN HYDROCHLORIDE\SAXAGLIPTIN [Concomitant]
     Active Substance: METFORMIN HYDROCHLORIDE\SAXAGLIPTIN
     Indication: Type 2 diabetes mellitus
     Dosage: 1 DOSAGE FORM
     Route: 048
     Dates: start: 20151007
  9. LERCANIDIPINE [Concomitant]
     Active Substance: LERCANIDIPINE
     Indication: Hypertension
     Dosage: 20 MILLIGRAM
     Route: 048
     Dates: start: 20160509
  10. Novalgin [Concomitant]
     Indication: Procedural pain
     Dosage: 500 MILLIGRAM
     Route: 048
     Dates: start: 20220112, end: 20220123
  11. Novalgin [Concomitant]
     Dosage: 500 MILLIGRAM
     Route: 048
     Dates: start: 20211221, end: 20220111
  12. OZEMPIC [Concomitant]
     Active Substance: SEMAGLUTIDE
     Indication: Type 2 diabetes mellitus
     Dosage: 0.5 MILLIGRAM
     Route: 058
     Dates: start: 20201101, end: 20201122
  13. OZEMPIC [Concomitant]
     Active Substance: SEMAGLUTIDE
     Dosage: 0.25 MILLIGRAM
     Route: 058
     Dates: start: 20201004, end: 20201025
  14. OZEMPIC [Concomitant]
     Active Substance: SEMAGLUTIDE
     Dosage: 1 MILLIGRAM
     Route: 058
     Dates: start: 20201129
  15. XIPAMIDE [Concomitant]
     Active Substance: XIPAMIDE
     Indication: Hypertension
     Dosage: 10 MILLIGRAM
     Route: 048
     Dates: start: 2016
  16. ENOXAPARIN SODIUM [Concomitant]
     Active Substance: ENOXAPARIN SODIUM
     Indication: Thrombosis
     Dosage: 4000 INTERNATIONAL UNIT
     Route: 058
     Dates: start: 20201024, end: 20210131
  17. METAMIZOL [Concomitant]
     Active Substance: METAMIZOLE SODIUM
     Indication: Multiple fractures
     Dosage: 500 MILLIGRAM
     Route: 048
     Dates: start: 20201024, end: 20210131
  18. PANTOPRAZOLE SODIUM [Concomitant]
     Active Substance: PANTOPRAZOLE SODIUM
     Indication: Prophylaxis
     Dosage: 40 MILLIGRAM
     Route: 048
     Dates: start: 20211221, end: 20220123
  19. AMOXICILLIN [Concomitant]
     Active Substance: AMOXICILLIN
     Indication: Influenza
     Dosage: 1000 MILLIGRAM
     Route: 048
     Dates: start: 20220521, end: 20220604
  20. DEXAMETHASONE\GENTAMICIN SULFATE [Concomitant]
     Active Substance: DEXAMETHASONE\GENTAMICIN SULFATE
     Indication: Cataract
     Dosage: 3 GTT DROPS
     Route: 050
     Dates: start: 20220906, end: 20221002
  21. DEXAMETHASONE\GENTAMICIN SULFATE [Concomitant]
     Active Substance: DEXAMETHASONE\GENTAMICIN SULFATE
     Dosage: 3 GTT DROPS
     Route: 050
     Dates: start: 20220823, end: 20220920
  22. BUDESONIDE [Concomitant]
     Active Substance: BUDESONIDE
     Indication: Influenza
     Dosage: UNK
     Route: 055
     Dates: start: 20220520, end: 20220604

REACTIONS (4)
  - Medical device removal [Recovered/Resolved]
  - Limb operation [Recovered/Resolved]
  - Carpal tunnel syndrome [Recovered/Resolved]
  - Procedural pain [Not Recovered/Not Resolved]

NARRATIVE: CASE EVENT DATE: 20211221
